FAERS Safety Report 13584623 (Version 1)
Quarter: 2017Q2

REPORT INFORMATION
  Report Type: Spontaneous
  Country: JP (occurrence: JP)
  Receive Date: 20170526
  Receipt Date: 20170526
  Transmission Date: 20170830
  Serious: Yes (Death, Hospitalization, Other)
  Sender: FDA-Public Use
  Company Number: JP-LUPIN PHARMACEUTICALS INC.-2017-02583

PATIENT
  Age: 79 Year
  Sex: Male

DRUGS (1)
  1. LEVOFLOXACIN. [Suspect]
     Active Substance: LEVOFLOXACIN
     Indication: INFLAMMATION
     Dosage: UNK, MULTIPLE 2-WEEK COURSES
     Route: 065

REACTIONS (4)
  - Graft infection [Fatal]
  - Embolism [Fatal]
  - Candida endophthalmitis [Fatal]
  - Fungaemia [Fatal]
